FAERS Safety Report 19135747 (Version 3)
Quarter: 2021Q2

REPORT INFORMATION
  Report Type: Spontaneous
  Country: JP (occurrence: JP)
  Receive Date: 20210414
  Receipt Date: 20210506
  Transmission Date: 20210717
  Serious: Yes (Other)
  Sender: FDA-Public Use
  Company Number: JP-ALLERGAN-2114806US

PATIENT
  Sex: Female

DRUGS (6)
  1. GASMOTIN [Concomitant]
     Active Substance: MOSAPRIDE CITRATE
     Indication: GASTRITIS
     Dosage: 5 MG, QD
     Route: 048
     Dates: start: 20200716, end: 20201116
  2. LINACLOTIDE ? BP [Suspect]
     Active Substance: LINACLOTIDE
     Dosage: 0.5 MG, QD
     Route: 048
     Dates: start: 20190927, end: 20200627
  3. LINACLOTIDE ? BP [Suspect]
     Active Substance: LINACLOTIDE
     Indication: CONSTIPATION
     Dosage: 0.5 MG, QD
     Route: 048
     Dates: start: 20200716, end: 20210327
  4. AMITIZA [Concomitant]
     Active Substance: LUBIPROSTONE
     Indication: CONSTIPATION
     Dosage: 24 ?G, BID
     Route: 048
     Dates: start: 20200627
  5. HYTHIOL [Concomitant]
     Indication: ECZEMA
     Dosage: 80 MG, Q8HR
     Route: 048
     Dates: start: 20190927, end: 20200726
  6. CINAL [ASCORBIC ACID;CALCIUM PANTOTHENATE] [Concomitant]
     Indication: ECZEMA
     Dosage: 200 MG, Q8HR
     Route: 048
     Dates: start: 20190927, end: 20200726

REACTIONS (3)
  - Hypokalaemia [Recovered/Resolved]
  - Hypokalaemia [Recovering/Resolving]
  - Intentional overdose [Unknown]

NARRATIVE: CASE EVENT DATE: 20200615
